FAERS Safety Report 5498304-7 (Version None)
Quarter: 2007Q4

REPORT INFORMATION
  Report Type: 
  Country: None (occurrence: None)
  Receive Date: 20071025
  Receipt Date: 20070604
  Transmission Date: 20080405
  Serious: No
  Sender: FDA-Public Use
  Company Number: A0649070A

PATIENT
  Age: 66 Year
  Sex: Male

DRUGS (8)
  1. ADVAIR DISKUS 100/50 [Suspect]
     Indication: ASTHMA
     Dosage: 250PUFF TWICE PER DAY
     Route: 055
     Dates: start: 20010101
  2. COMBIVENT [Concomitant]
  3. LIPITOR [Concomitant]
  4. UNKNOWN MEDICATION [Concomitant]
  5. METOPROLOL TARTRATE [Concomitant]
  6. WARFARIN SODIUM [Concomitant]
  7. ASPIRIN [Concomitant]
  8. MULTI-VITAMIN [Concomitant]

REACTIONS (3)
  - PHARMACEUTICAL PRODUCT COMPLAINT [None]
  - PULMONARY FUNCTION TEST DECREASED [None]
  - RESPIRATORY DISORDER [None]
